FAERS Safety Report 8149677-8 (Version None)
Quarter: 2012Q1

REPORT INFORMATION
  Report Type: 
  Country: None (occurrence: None)
  Receive Date: 20120218
  Receipt Date: 20111111
  Transmission Date: 20120608
  Serious: No
  Sender: FDA-Public Use
  Company Number: US-ALLERGAN-1114938US

PATIENT
  Age: 42 Year
  Sex: Female

DRUGS (3)
  1. BOTOX COSMETIC [Suspect]
     Indication: BLEPHAROSPASM
  2. BOTOX COSMETIC [Suspect]
     Indication: MIGRAINE
  3. BOTOX COSMETIC [Suspect]
     Indication: HEADACHE
     Dosage: 150 UNITS, SINGLE
     Dates: start: 20111026, end: 20111026

REACTIONS (34)
  - COUGH [None]
  - ANXIETY [None]
  - MIGRAINE [None]
  - PHOTOPHOBIA [None]
  - RESTLESSNESS [None]
  - SKIN DISCOLOURATION [None]
  - PYREXIA [None]
  - PALPITATIONS [None]
  - LETHARGY [None]
  - CONFUSIONAL STATE [None]
  - URINARY RETENTION [None]
  - DYSURIA [None]
  - DIARRHOEA [None]
  - RESPIRATORY TRACT CONGESTION [None]
  - VISUAL ACUITY REDUCED [None]
  - EYELID OEDEMA [None]
  - SWELLING FACE [None]
  - ABDOMINAL DISTENSION [None]
  - NIGHTMARE [None]
  - INSOMNIA [None]
  - CONSTIPATION [None]
  - DIZZINESS [None]
  - VISION BLURRED [None]
  - NAUSEA [None]
  - INFLUENZA LIKE ILLNESS [None]
  - ABDOMINAL DISCOMFORT [None]
  - ABDOMINAL PAIN UPPER [None]
  - HEADACHE [None]
  - FATIGUE [None]
  - SINUS HEADACHE [None]
  - BACK PAIN [None]
  - ARTHRALGIA [None]
  - DRY SKIN [None]
  - PAIN [None]
